FAERS Safety Report 5286762-2 (Version None)
Quarter: 2007Q2

REPORT INFORMATION
  Report Type: 
  Country: None (occurrence: None)
  Receive Date: 20070404
  Receipt Date: 20070330
  Transmission Date: 20071010
  Serious: Yes (Other)
  Sender: FDA-Public Use
  Company Number: 2006UW23155

PATIENT
  Age: 46 Year
  Sex: Male
  Weight: 137.7 kg

DRUGS (4)
  1. SEROQUEL [Suspect]
     Dosage: 100 MG AND 500 MG
     Route: 048
     Dates: start: 20050307, end: 20050801
  2. ABILIFY [Concomitant]
     Dates: start: 20050601
  3. ZYPREXA [Concomitant]
     Dates: start: 20050901
  4. COCAINE [Concomitant]
     Dates: start: 19960101

REACTIONS (4)
  - BLOOD URINE PRESENT [None]
  - DIABETES MELLITUS INSULIN-DEPENDENT [None]
  - PANCREATITIS [None]
  - RENAL CELL CARCINOMA STAGE UNSPECIFIED [None]
